FAERS Safety Report 7785365-5 (Version None)
Quarter: 2011Q3

REPORT INFORMATION
  Report Type: 
  Country: None (occurrence: None)
  Receive Date: 20110929
  Receipt Date: 20110921
  Transmission Date: 20111222
  Serious: Yes (Hospitalization)
  Sender: FDA-Public Use
  Company Number: PHHY2011US22308

PATIENT
  Sex: Female

DRUGS (7)
  1. CAYSTON [Concomitant]
     Dosage: UNK
     Dates: start: 20110422
  2. ALBUTEROL [Concomitant]
     Dosage: TID
  3. GENTAMICIN [Concomitant]
     Dosage: EVERY 8 HOURS
     Route: 042
  4. TOBI [Suspect]
     Indication: CYSTIC FIBROSIS
     Dosage: 300 MG, BID 28 DAYS ON AND 28 DAYS OFF
     Dates: start: 20110107
  5. HYPERSAL [Concomitant]
     Dosage: UNK
  6. TIMENTIN [Concomitant]
     Dosage: EVERY 6 HOURS
     Route: 042
  7. PULMOZYME [Concomitant]
     Dosage: BID

REACTIONS (8)
  - COUGH [None]
  - ASTHENIA [None]
  - STAPHYLOCOCCAL INFECTION [None]
  - LUNG INFECTION [None]
  - DYSPNOEA [None]
  - PYREXIA [None]
  - INFECTIVE PULMONARY EXACERBATION OF CYSTIC FIBROSIS [None]
  - MALAISE [None]
